FAERS Safety Report 11767299 (Version 1)
Quarter: 2015Q4

REPORT INFORMATION
  Report Type: Spontaneous
  Country: US (occurrence: None)
  Receive Date: 20151120
  Receipt Date: 20151120
  Transmission Date: 20160304
  Serious: Yes (Hospitalization)
  Sender: FDA-Public Use
  Company Number: None

PATIENT
  Age: 69 Year
  Sex: Male
  Weight: 85.1 kg

DRUGS (2)
  1. LIDOCAINE. [Suspect]
     Active Substance: LIDOCAINE
     Indication: BIOPSY PROSTATE
     Dosage: 10 ML, OTHER
     Dates: start: 20151027, end: 20151027
  2. LISINOPRIL. [Suspect]
     Active Substance: LISINOPRIL
     Indication: HYPERTENSION
     Route: 048
     Dates: start: 20130926, end: 20151027

REACTIONS (9)
  - Hyperhidrosis [None]
  - Angioedema [None]
  - Anaphylactic reaction [None]
  - Loss of consciousness [None]
  - Hypotension [None]
  - Syncope [None]
  - Nausea [None]
  - Hypersensitivity [None]
  - Vomiting [None]

NARRATIVE: CASE EVENT DATE: 20151027
